FAERS Safety Report 18945450 (Version 3)
Quarter: 2021Q1

REPORT INFORMATION
  Report Type: Report from Study
  Country: IE (occurrence: IE)
  Receive Date: 20210226
  Receipt Date: 20210330
  Transmission Date: 20210420
  Serious: Yes (Other)
  Sender: FDA-Public Use
  Company Number: NVSC2021IE039959

PATIENT
  Age: 29 Year
  Sex: Female

DRUGS (1)
  1. RIBOCICLIB. [Suspect]
     Active Substance: RIBOCICLIB
     Indication: BREAST CANCER METASTATIC
     Dosage: UNK
     Route: 065
     Dates: start: 20210204

REACTIONS (3)
  - Nausea [Unknown]
  - Bradycardia [Recovered/Resolved]
  - Miliaria [Unknown]

NARRATIVE: CASE EVENT DATE: 20210216
